FAERS Safety Report 10061532 (Version 2)
Quarter: 2014Q2

REPORT INFORMATION
  Report Type: Spontaneous
  Country: US (occurrence: US)
  Receive Date: 20140407
  Receipt Date: 20140521
  Transmission Date: 20141212
  Serious: Yes (Other)
  Sender: FDA-Public Use
  Company Number: US-AMGEN-USASP2014023398

PATIENT
  Age: 53 Year
  Sex: Female

DRUGS (13)
  1. ENBREL [Suspect]
     Indication: RHEUMATOID ARTHRITIS
     Dosage: 50 MG, QWK
     Route: 065
     Dates: start: 20100726
  2. BIOTIN [Concomitant]
     Dosage: 1000 MUG, QD
  3. VITAMIN B6 [Concomitant]
     Dosage: 50 MG, QD
  4. VITAMIN D3 [Concomitant]
     Dosage: 1000 UNIT, QD
  5. COLACE [Concomitant]
     Dosage: 100 MG, BID
  6. AZULFIDINE EN [Concomitant]
     Dosage: 1500 MG, QD
  7. RELAFEN [Concomitant]
     Dosage: 1500 MG, QD
  8. VITAMIN E                          /00110501/ [Concomitant]
     Dosage: 400 UNIT, QD
  9. VITAMIN C                          /00008001/ [Concomitant]
     Dosage: 500 MG, QD
  10. CALCIUM [Concomitant]
     Dosage: 1200 MG, QD
  11. CELEXA                             /00582602/ [Concomitant]
     Dosage: 20 MG, QD
  12. VITAMIN D                          /00107901/ [Concomitant]
     Dosage: 50000 UNIT, QWK
     Route: 048
  13. MEDROL                             /00049601/ [Concomitant]
     Dosage: 4 MG, AS DIRECTED

REACTIONS (29)
  - Immune system disorder [Not Recovered/Not Resolved]
  - Rheumatoid arthritis [Recovering/Resolving]
  - Cellulitis [Recovering/Resolving]
  - Urinary tract infection [Unknown]
  - Staphylococcal infection [Unknown]
  - Blister [Not Recovered/Not Resolved]
  - Local swelling [Not Recovered/Not Resolved]
  - Pyrexia [Not Recovered/Not Resolved]
  - Neck pain [Not Recovered/Not Resolved]
  - Arthropod bite [Not Recovered/Not Resolved]
  - Skin disorder [Recovering/Resolving]
  - Joint range of motion decreased [Unknown]
  - Pain [Unknown]
  - Synovitis [Unknown]
  - Tenosynovitis [Unknown]
  - Osteoarthritis [Unknown]
  - Osteopenia [Unknown]
  - Carpal tunnel syndrome [Unknown]
  - Constipation [Unknown]
  - Haemorrhoids [Unknown]
  - Malaise [Unknown]
  - Hyperlipidaemia [Unknown]
  - Folliculitis [Unknown]
  - Anxiety [Unknown]
  - Depression [Unknown]
  - Onychomycosis [Unknown]
  - Rash pustular [Not Recovered/Not Resolved]
  - Vaginal infection [Unknown]
  - Localised infection [Not Recovered/Not Resolved]
